FAERS Safety Report 24660423 (Version 1)
Quarter: 2024Q4

REPORT INFORMATION
  Report Type: Spontaneous
  Country: US (occurrence: None)
  Receive Date: 20241124
  Receipt Date: 20241124
  Transmission Date: 20250114
  Serious: No
  Sender: Public
  Company Number: None

PATIENT
  Sex: Female

DRUGS (1)
  1. COMPLEMENTARY ALTERNATIVE MEDICINE (CAM) PRODUCT, OTHER\SODIUM DESOXYC [Suspect]
     Active Substance: COMPLEMENTARY ALTERNATIVE MEDICINE (CAM) PRODUCT, OTHER\SODIUM DESOXYCHOLATE
     Indication: Fat tissue increased
     Dates: start: 20241123

REACTIONS (1)
  - Nausea [None]

NARRATIVE: CASE EVENT DATE: 20241124
